FAERS Safety Report 5194537-8 (Version None)
Quarter: 2006Q4

REPORT INFORMATION
  Report Type: 
  Country: None (occurrence: None)
  Receive Date: 20061222
  Receipt Date: 20061215
  Transmission Date: 20070319
  Serious: Yes (Hospitalization)
  Sender: FDA-Public Use
  Company Number: FRWYE858815DEC06

PATIENT
  Age: 10 Year
  Sex: Male

DRUGS (2)
  1. ADVIL [Suspect]
     Indication: ASTHENIA
     Dosage: 202.5 MG 3X PER 1 DAY
     Route: 048
     Dates: start: 20060911, end: 20060916
  2. ADVIL [Suspect]
     Indication: PYREXIA
     Dosage: 202.5 MG 3X PER 1 DAY
     Route: 048
     Dates: start: 20060911, end: 20060916

REACTIONS (5)
  - CARDIAC PERFORATION [None]
  - CARDIAC VALVE ABSCESS [None]
  - ENDOCARDITIS STAPHYLOCOCCAL [None]
  - SEPTIC EMBOLUS [None]
  - STAPHYLOCOCCAL SEPSIS [None]
